FAERS Safety Report 6170962-3 (Version None)
Quarter: 2009Q2

REPORT INFORMATION
  Report Type: 
  Country: None (occurrence: None)
  Receive Date: 20090427
  Receipt Date: 20090427
  Transmission Date: 20091009
  Serious: Yes (Life-Threatening)
  Sender: FDA-Public Use
  Company Number: None

PATIENT
  Age: 80 Year
  Sex: Male
  Weight: 93 kg

DRUGS (6)
  1. EPTIFIBATIDE [Suspect]
     Indication: PERCUTANEOUS CORONARY INTERVENTION
     Dosage: 1 MCG/KG/ MIN IV
     Route: 042
     Dates: start: 20081122, end: 20081123
  2. ASPIRIN [Concomitant]
  3. CARVEDILOL [Concomitant]
  4. CLOPIDOGREL [Concomitant]
  5. INSULIN [Concomitant]
  6. HEPARIN [Concomitant]

REACTIONS (3)
  - HAEMOGLOBIN DECREASED [None]
  - INFUSION RELATED REACTION [None]
  - RECTAL HAEMORRHAGE [None]
